FAERS Safety Report 24561578 (Version 1)
Quarter: 2024Q4

REPORT INFORMATION
  Report Type: Spontaneous
  Country: US (occurrence: None)
  Receive Date: 20241029
  Receipt Date: 20241029
  Transmission Date: 20250115
  Serious: Yes (unspecified)
  Sender: Public
  Company Number: None

PATIENT
  Age: 82 Year
  Sex: Female

DRUGS (1)
  1. TOLVAPTAN [Suspect]
     Active Substance: TOLVAPTAN
     Indication: Immunodeficiency
     Dosage: FREQUENCY : DAILY;?

REACTIONS (2)
  - Hyponatraemia [None]
  - Product use issue [None]

NARRATIVE: CASE EVENT DATE: 20241028
